FAERS Safety Report 7210979-0 (Version None)
Quarter: 2011Q1

REPORT INFORMATION
  Report Type: 
  Country: None (occurrence: None)
  Receive Date: 20110105
  Receipt Date: 20101217
  Transmission Date: 20110831
  Serious: Yes (Hospitalization, Congenital Anomaly)
  Sender: FDA-Public Use
  Company Number: A0902858A

PATIENT
  Sex: Female

DRUGS (2)
  1. PAXIL [Suspect]
     Indication: DEPRESSION
  2. PROCARDIA [Concomitant]
     Route: 065

REACTIONS (12)
  - DRUG EXPOSURE DURING PREGNANCY [None]
  - FAILURE TO THRIVE [None]
  - ATRIAL SEPTAL DEFECT [None]
  - CONGENITAL ANOMALY [None]
  - MATERNAL DRUGS AFFECTING FOETUS [None]
  - CAESAREAN SECTION [None]
  - ELECTROCARDIOGRAM QRS COMPLEX PROLONGED [None]
  - TACHYCARDIA [None]
  - ANOMALOUS PULMONARY VENOUS CONNECTION [None]
  - ANXIETY [None]
  - BREECH PRESENTATION [None]
  - ELECTROCARDIOGRAM ST-T CHANGE [None]
